FAERS Safety Report 7106201-6 (Version None)
Quarter: 2010Q4

REPORT INFORMATION
  Report Type: 
  Country: None (occurrence: None)
  Receive Date: 20101116
  Receipt Date: 20101110
  Transmission Date: 20110411
  Serious: Yes (Life-Threatening, Other)
  Sender: FDA-Public Use
  Company Number: PHEH2007US13089

PATIENT
  Sex: Female
  Weight: 79.819 kg

DRUGS (8)
  1. AREDIA [Suspect]
     Dosage: UNK
  2. ZOMETA [Suspect]
  3. ALKERAN [Concomitant]
     Dosage: UNK
     Dates: end: 19980101
  4. PREDNISONE [Concomitant]
     Dosage: UNK
     Dates: end: 19980101
  5. CHEMOTHERAPEUTICS NOS [Concomitant]
  6. COUMADIN [Concomitant]
  7. TYLENOL EXTRA-STRENGTH [Concomitant]
  8. MULTI-VITAMINS [Concomitant]

REACTIONS (42)
  - ACTINOMYCOSIS [None]
  - BASAL CELL CARCINOMA [None]
  - BONE DISORDER [None]
  - BONE EROSION [None]
  - BONE LESION [None]
  - BRONCHITIS [None]
  - BURSITIS [None]
  - CENTRAL VENOUS CATHETERISATION [None]
  - COLONIC POLYP [None]
  - CONSTIPATION [None]
  - CYSTITIS NONINFECTIVE [None]
  - DEFORMITY [None]
  - DEPRESSED MOOD [None]
  - ESSENTIAL HYPERTENSION [None]
  - EXOSTOSIS [None]
  - FALL [None]
  - FUNGAL INFECTION [None]
  - GASTROINTESTINAL HAEMORRHAGE [None]
  - HERPES ZOSTER [None]
  - HIP ARTHROPLASTY [None]
  - HYPOTHYROIDISM [None]
  - INFECTION [None]
  - MALIGNANT NEOPLASM PROGRESSION [None]
  - MUSCULOSKELETAL DISCOMFORT [None]
  - OSTEOARTHRITIS [None]
  - OSTEONECROSIS OF JAW [None]
  - PAIN IN JAW [None]
  - PANCYTOPENIA [None]
  - PLANTAR FASCIITIS [None]
  - PNEUMONIA [None]
  - POLYP [None]
  - RENAL CYST [None]
  - RENAL FAILURE [None]
  - RESPIRATORY FAILURE [None]
  - SEBORRHOEIC KERATOSIS [None]
  - SEPTIC SHOCK [None]
  - SPONDYLOARTHROPATHY [None]
  - STEM CELL TRANSPLANT [None]
  - TENDONITIS [None]
  - TONGUE DISORDER [None]
  - TOOTH EXTRACTION [None]
  - URINARY TRACT INFECTION [None]
